FAERS Safety Report 8780092 (Version 1)
Quarter: 2012Q4

REPORT INFORMATION
  Report Type: Spontaneous
  Country: US (occurrence: None)
  Receive Date: 20120904
  Receipt Date: 20120904
  Transmission Date: 20130627
  Serious: Yes (Other)
  Sender: FDA-Public Use
  Company Number: None

PATIENT
  Age: 58 Year
  Sex: Female
  Weight: 70.76 kg

DRUGS (1)
  1. ERLOTINIB [Suspect]
     Route: 048
     Dates: start: 20110914, end: 20120710

REACTIONS (7)
  - Metastases to central nervous system [None]
  - Fatigue [None]
  - Asthenia [None]
  - Lethargy [None]
  - Hyperglycaemia [None]
  - Fatigue [None]
  - Activities of daily living impaired [None]
